FAERS Safety Report 7854369-6 (Version None)
Quarter: 2011Q4

REPORT INFORMATION
  Report Type: 
  Country: None (occurrence: None)
  Receive Date: 20111026
  Receipt Date: 20111022
  Transmission Date: 20120403
  Serious: Yes (Hospitalization)
  Sender: FDA-Public Use
  Company Number: FR-PFIZER INC-2011240912

PATIENT
  Age: 33 Year
  Sex: Male
  Weight: 63 kg

DRUGS (1)
  1. CRIZOTINIB [Suspect]
     Indication: NON-SMALL CELL LUNG CANCER
     Dosage: 250 MG, 2X/DAY CONTINUOUS
     Route: 048
     Dates: start: 20110916, end: 20111002

REACTIONS (6)
  - DIARRHOEA [None]
  - BLOOD CREATININE INCREASED [None]
  - VOMITING [None]
  - NAUSEA [None]
  - COUGH [None]
  - WEIGHT DECREASED [None]
